FAERS Safety Report 13993324 (Version 6)
Quarter: 2019Q2

REPORT INFORMATION
  Report Type: Report from Study
  Country: US (occurrence: US)
  Receive Date: 20170920
  Receipt Date: 20190512
  Transmission Date: 20190711
  Serious: Yes (Other)
  Sender: FDA-Public Use
  Company Number: PHHY2017US136403

PATIENT
  Age: 58 Year
  Sex: Female

DRUGS (1)
  1. SYSTANE ULTRA [Suspect]
     Active Substance: POLYETHYLENE GLYCOL 400\PROPYLENE GLYCOL
     Indication: PRODUCT USED FOR UNKNOWN INDICATION
     Route: 047

REACTIONS (15)
  - Eye ulcer [Unknown]
  - Visual impairment [Unknown]
  - Eye swelling [Unknown]
  - Eye discharge [Unknown]
  - Dry mouth [Unknown]
  - Eye inflammation [Unknown]
  - Iris disorder [Unknown]
  - Exposure to radiation [Unknown]
  - Nasal dryness [Unknown]
  - Eye infection [Unknown]
  - Deafness unilateral [Unknown]
  - Brain neoplasm [Unknown]
  - Dry eye [Unknown]
  - Lacrimation decreased [Unknown]
  - Nasal sinus cancer [Unknown]

NARRATIVE: CASE EVENT DATE: 201712
